FAERS Safety Report 17724533 (Version 1)
Quarter: 2020Q2

REPORT INFORMATION
  Report Type: Spontaneous
  Country: CA (occurrence: CA)
  Receive Date: 20200429
  Receipt Date: 20200429
  Transmission Date: 20200714
  Serious: Yes (Hospitalization, Other)
  Sender: FDA-Public Use
  Company Number: CA-FERRINGPH-2020FE02692

PATIENT

DRUGS (1)
  1. CERVIDIL [Suspect]
     Active Substance: DINOPROSTONE
     Indication: LABOUR INDUCTION
     Dosage: 10 MG, ONCE/SINGLE
     Route: 064
     Dates: start: 20200406, end: 20200407

REACTIONS (2)
  - Blood lactic acid increased [Unknown]
  - Foetal heart rate abnormal [Unknown]

NARRATIVE: CASE EVENT DATE: 20200407
